FAERS Safety Report 5776856-7 (Version None)
Quarter: 2008Q2

REPORT INFORMATION
  Report Type: 
  Country: None (occurrence: None)
  Receive Date: 20080618
  Receipt Date: 20080516
  Transmission Date: 20081010
  Serious: Yes (Other)
  Sender: FDA-Public Use
  Company Number: US-ASTRAZENECA-2008UW10207

PATIENT
  Age: 45 Year
  Sex: Female

DRUGS (2)
  1. SYMBICORT [Suspect]
     Dosage: 80/4.5 MCG 2 PUFFS BID
     Route: 055
  2. AUGMENTIN '125' [Concomitant]
     Indication: UPPER RESPIRATORY TRACT INFECTION

REACTIONS (2)
  - HYPOKALAEMIA [None]
  - TACHYCARDIA [None]
